FAERS Safety Report 11350671 (Version 1)
Quarter: 2015Q3

REPORT INFORMATION
  Report Type: Spontaneous
  Country: US (occurrence: US)
  Receive Date: 20150807
  Receipt Date: 20150807
  Transmission Date: 20151125
  Serious: No
  Sender: FDA-Public Use
  Company Number: US-JNJFOC-20150416354

PATIENT
  Age: 56 Year
  Sex: Female
  Weight: 61.24 kg

DRUGS (3)
  1. VISINE (PRODUCTS) [Suspect]
     Active Substance: TETRAHYDROZOLINE HYDROCHLORIDE
     Route: 047
  2. VISINE (PRODUCTS) [Suspect]
     Active Substance: TETRAHYDROZOLINE HYDROCHLORIDE
     Indication: OCULAR HYPERAEMIA
     Dosage: PER EYE
     Route: 047
  3. VISINE L.R. [Concomitant]
     Active Substance: OXYMETAZOLINE HYDROCHLORIDE
     Indication: OCULAR HYPERAEMIA
     Route: 065

REACTIONS (1)
  - Drug ineffective [Unknown]
